FAERS Safety Report 10171483 (Version 1)
Quarter: 2014Q2

REPORT INFORMATION
  Report Type: Spontaneous
  Country: US (occurrence: None)
  Receive Date: 20140429
  Receipt Date: 20140429
  Transmission Date: 20141212
  Serious: Yes (Other)
  Sender: FDA-Public Use
  Company Number: 2014-US-001547

PATIENT
  Sex: Female

DRUGS (3)
  1. LUVOX CR [Suspect]
     Indication: OBSESSIVE-COMPULSIVE DISORDER
     Route: 048
     Dates: start: 2013, end: 2013
  2. AZILECT [Suspect]
     Indication: OBSESSIVE-COMPULSIVE DISORDER
  3. PROZAC (FLUOXETIN HYDROCHLORIDE) [Concomitant]

REACTIONS (6)
  - Serotonin syndrome [None]
  - Nausea [None]
  - Vomiting [None]
  - Blood pressure increased [None]
  - Flushing [None]
  - Disorientation [None]
